FAERS Safety Report 4976640-8 (Version None)
Quarter: 2006Q2

REPORT INFORMATION
  Report Type: 
  Country: None (occurrence: None)
  Receive Date: 20060419
  Receipt Date: 20060104
  Transmission Date: 20061013
  Serious: Yes (Death, Hospitalization)
  Sender: FDA-Public Use
  Company Number: US-MERCK-0601USA00628

PATIENT
  Age: 68 Year
  Sex: Male
  Weight: 91 kg

DRUGS (32)
  1. VIOXX [Suspect]
     Indication: BACK PAIN
     Route: 048
     Dates: start: 19991207, end: 20031209
  2. ADVAIR DISKUS 100/50 [Concomitant]
     Indication: ASTHMA
     Route: 065
  3. ASPIRIN [Concomitant]
     Indication: ISCHAEMIC HEART DISEASE PROPHYLAXIS
     Route: 065
     Dates: start: 20011106
  4. ALLEGRA [Concomitant]
     Indication: HYPERSENSITIVITY
     Route: 065
  5. AMITRIPTYLINE HYDROCHLORIDE [Concomitant]
     Indication: PAIN
     Route: 065
     Dates: start: 20001009, end: 20010401
  6. AMOXICILLIN [Concomitant]
     Indication: BACTERIAL INFECTION
     Route: 065
  7. ATIVAN [Concomitant]
     Indication: ANXIETY
     Route: 065
  8. AUGMENTIN '125' [Concomitant]
     Indication: BACTERIAL INFECTION
     Route: 065
  9. BACLOFEN [Concomitant]
     Indication: MUSCLE SPASMS
     Route: 065
     Dates: start: 19991008, end: 20031001
  10. BENZONATATE [Concomitant]
     Indication: COUGH
     Route: 065
  11. CEFZIL [Concomitant]
     Indication: BACTERIAL INFECTION
     Route: 065
  12. CELEBREX [Concomitant]
     Indication: PAIN
     Route: 065
     Dates: start: 20020916, end: 20021201
  13. CELEXA [Concomitant]
     Indication: DEPRESSION
     Route: 065
  14. CEPHALEXIN [Concomitant]
     Indication: BACTERIAL INFECTION
     Route: 065
  15. CIPRO [Concomitant]
     Indication: BACTERIAL INFECTION
     Route: 065
  16. DIFLUCAN [Concomitant]
     Indication: INFECTION
     Route: 065
  17. DIPHENHYDRAMINE HYDROCHLORIDE [Concomitant]
     Indication: SINUS DISORDER
     Route: 065
  18. DOXYCYCLINE [Concomitant]
     Indication: BACTERIAL INFECTION
     Route: 065
  19. DURATUSS G [Concomitant]
     Indication: COUGH
     Route: 065
  20. ELAVIL [Concomitant]
     Indication: PAIN
     Route: 065
     Dates: start: 19980106, end: 20031201
  21. ENTEX (NEW FORMULA) [Concomitant]
     Indication: PULMONARY CONGESTION
     Route: 065
  22. FLONASE [Concomitant]
     Indication: HYPERSENSITIVITY
     Route: 065
  23. FLUOXETINE [Concomitant]
     Indication: PAIN
     Route: 065
     Dates: start: 20011227, end: 20020101
  24. ZYRTEC [Concomitant]
     Indication: HYPERSENSITIVITY
     Route: 065
  25. ZITHROMAX [Concomitant]
     Indication: BACTERIAL INFECTION
     Route: 065
  26. ZOLOFT [Concomitant]
     Indication: DEPRESSION
     Route: 065
  27. HYDROCODONE BITARTRATE [Concomitant]
     Indication: PAIN
     Route: 065
     Dates: start: 20021217, end: 20021201
  28. ACETAMINOPHEN AND HYDROCODONE BITARTRATE [Concomitant]
     Indication: PAIN
     Route: 065
     Dates: start: 20021121, end: 20021101
  29. LACTULOSE [Concomitant]
     Indication: CONSTIPATION
     Route: 065
  30. LEVAQUIN [Concomitant]
     Indication: BACTERIAL INFECTION
     Route: 065
  31. LORAZEPAM [Concomitant]
     Indication: ANXIETY
     Route: 065
  32. NEURONTIN [Concomitant]
     Indication: PAIN
     Route: 065
     Dates: start: 20010312, end: 20031201

REACTIONS (17)
  - ANGINA PECTORIS [None]
  - ARTERIAL OCCLUSIVE DISEASE [None]
  - ARTERIOSCLEROSIS [None]
  - CATARACT [None]
  - CHRONIC OBSTRUCTIVE PULMONARY DISEASE [None]
  - DYSPEPSIA [None]
  - GASTRIC DISORDER [None]
  - GASTROINTESTINAL DISORDER [None]
  - GASTROOESOPHAGEAL REFLUX DISEASE [None]
  - GLAUCOMA [None]
  - HAEMATOCHEZIA [None]
  - HEPATITIS C [None]
  - HYPERTENSION [None]
  - MYOCARDIAL INFARCTION [None]
  - OBESITY [None]
  - OEDEMA [None]
  - SQUAMOUS CELL CARCINOMA [None]
